FAERS Safety Report 10124155 (Version 2)
Quarter: 2015Q1

REPORT INFORMATION
  Report Type: Other
  Country: US (occurrence: US)
  Receive Date: 20140427
  Receipt Date: 20150220
  Transmission Date: 20150720
  Serious: Yes (Hospitalization, Other)
  Sender: FDA-Public Use
  Company Number: US-GSKPPD-2014GSK025273

PATIENT
  Age: 66 Year
  Sex: Male
  Weight: 86.26 kg

DRUGS (6)
  1. ASPIRIN. [Concomitant]
     Active Substance: ASPIRIN
  2. AVANDIA [Suspect]
     Active Substance: ROSIGLITAZONE MALEATE
     Indication: DIABETES MELLITUS
     Dosage: AVANDIA WAS NOT LISTED AMONG THE PATIENTS RECORDS REVIEWED.
     Route: 048
  3. LISINOPRIL. [Concomitant]
     Active Substance: LISINOPRIL
  4. ZESTRIL [Concomitant]
     Active Substance: LISINOPRIL
  5. AVANDAMET [Suspect]
     Active Substance: METFORMIN HYDROCHLORIDE\ROSIGLITAZONE MALEATE
     Indication: DIABETES MELLITUS
     Dosage: 4 PER 500 MG??DATES OF AVANDAMET USE COULD NOT BE CONFIRMED IN RECORDS REVIEWED.
  6. AVANDARYL [Suspect]
     Active Substance: GLIMEPIRIDE\ROSIGLITAZONE MALEATE
     Indication: DIABETES MELLITUS
     Dosage: 4MG PER 2MG??DATES OF AVANDARYL USE COULD NOT BE CONFIRMED IN RECORDS REVIEWED.

REACTIONS (2)
  - Coronary artery disease [Unknown]
  - Myocardial infarction [Unknown]

NARRATIVE: CASE EVENT DATE: 20080403
